FAERS Safety Report 19858091 (Version 2)
Quarter: 2021Q4

REPORT INFORMATION
  Report Type: Report from Study
  Country: US (occurrence: US)
  Receive Date: 20210921
  Receipt Date: 20211109
  Transmission Date: 20220304
  Serious: Yes (Other)
  Sender: FDA-Public Use
  Company Number: US-ABBVIE-21K-163-4086840-00

PATIENT
  Age: 70 Year
  Sex: Female
  Weight: 41.768 kg

DRUGS (10)
  1. CREON [Suspect]
     Active Substance: PANCRELIPASE AMYLASE\PANCRELIPASE LIPASE\PANCRELIPASE PROTEASE
     Indication: Pancreatic failure
     Dosage: 3 CAPSULE PER MEAL AND 2 CAPSULES PER SNACKS
     Route: 048
     Dates: start: 202004, end: 2020
  2. CREON [Suspect]
     Active Substance: PANCRELIPASE AMYLASE\PANCRELIPASE LIPASE\PANCRELIPASE PROTEASE
     Dosage: THREE CAPSULES WITH EACH MEALS AND TWO CAPSULES EACH SNACKS
     Route: 048
     Dates: start: 202011
  3. RESTASIS [Concomitant]
     Active Substance: CYCLOSPORINE
     Indication: Dry eye
  4. PFIZER-BIONTECH COVID-19 VACCINE [Concomitant]
     Active Substance: TOZINAMERAN
     Indication: COVID-19 immunisation
     Route: 030
     Dates: start: 20210125, end: 20210125
  5. PFIZER-BIONTECH COVID-19 VACCINE [Concomitant]
     Active Substance: TOZINAMERAN
     Route: 030
     Dates: start: 20210212, end: 20210212
  6. PFIZER-BIONTECH COVID-19 VACCINE [Concomitant]
     Active Substance: TOZINAMERAN
     Route: 030
     Dates: start: 20210903, end: 20210903
  7. LEVOTHYROXINE [Concomitant]
     Active Substance: LEVOTHYROXINE
     Indication: Hypothyroidism
  8. MIDODRINE [Concomitant]
     Active Substance: MIDODRINE
     Indication: Hypotension
  9. MONTELUKAST [Concomitant]
     Active Substance: MONTELUKAST SODIUM
     Indication: Rhinitis allergic
  10. RESTASIS [Concomitant]
     Active Substance: CYCLOSPORINE
     Indication: Dry eye

REACTIONS (1)
  - Dental caries [Recovered/Resolved]

NARRATIVE: CASE EVENT DATE: 20210920
